FAERS Safety Report 6635001-6 (Version None)
Quarter: 2010Q1

REPORT INFORMATION
  Report Type: 
  Country: None (occurrence: None)
  Receive Date: 20100315
  Receipt Date: 20100301
  Transmission Date: 20100710
  Serious: Yes (Other)
  Sender: FDA-Public Use
  Company Number: DE-BAYER-201014783GPV

PATIENT
  Age: 48 Year
  Sex: Female

DRUGS (3)
  1. BETAFERON [Suspect]
     Indication: MULTIPLE SCLEROSIS
     Route: 058
     Dates: start: 20090101
  2. GABAPENTIN [Concomitant]
     Dosage: TOTAL DAILY DOSE: 200 MG
  3. IBUPROFEN [Concomitant]

REACTIONS (4)
  - ANGIOEDEMA [None]
  - ORAL HERPES [None]
  - PRURITUS [None]
  - URTICARIA [None]
